FAERS Safety Report 8874581 (Version 1)
Quarter: 2012Q4

REPORT INFORMATION
  Report Type: 
  Country: US (occurrence: US)
  Receive Date: 20121030
  Receipt Date: 20121030
  Transmission Date: 20130627
  Serious: No
  Sender: FDA-Public Use
  Company Number: US-ASTRAZENECA-2012SE77979

PATIENT
  Age: 51 Year
  Sex: Male

DRUGS (2)
  1. BRILINTA [Suspect]
     Dosage: TWO TIMES A DAY
     Route: 048
  2. BRILINTA [Suspect]
     Dosage: DAILY
     Route: 048

REACTIONS (3)
  - Activities of daily living impaired [Unknown]
  - Dyspnoea [Recovered/Resolved]
  - Intentional drug misuse [Recovered/Resolved]
